FAERS Safety Report 9780242 (Version 1)
Quarter: 2013Q4

REPORT INFORMATION
  Report Type: Spontaneous
  Country: SG (occurrence: SG)
  Receive Date: 20131223
  Receipt Date: 20131223
  Transmission Date: 20140711
  Serious: Yes (Other)
  Sender: FDA-Public Use
  Company Number: ALCN2013SG006248

PATIENT
  Age: 20 Year
  Sex: Male

DRUGS (6)
  1. TIMOLOL [Suspect]
     Indication: INTRAOCULAR PRESSURE INCREASED
     Route: 047
  2. LATANOPROST [Suspect]
     Indication: INTRAOCULAR PRESSURE INCREASED
     Route: 047
  3. LOTEPREDNOL [Suspect]
     Indication: INTRAOCULAR PRESSURE INCREASED
  4. SPERSADEXOLINA [Suspect]
     Indication: ECZEMA
  5. CICLOSPORIN A [Concomitant]
     Indication: INTRAOCULAR PRESSURE INCREASED
     Route: 061
  6. OLOPATADINE [Concomitant]
     Indication: INTRAOCULAR PRESSURE INCREASED
     Route: 047

REACTIONS (2)
  - Intraocular pressure increased [Recovered/Resolved with Sequelae]
  - Drug ineffective [Recovered/Resolved with Sequelae]
